FAERS Safety Report 14740496 (Version 2)
Quarter: 2018Q2

REPORT INFORMATION
  Report Type: Report from Study
  Country: CA (occurrence: CA)
  Receive Date: 20180410
  Receipt Date: 20180420
  Transmission Date: 20180711
  Serious: Yes (Hospitalization, Other)
  Sender: FDA-Public Use
  Company Number: CA-BAYER-2018-054503

PATIENT
  Age: 69 Year
  Sex: Female

DRUGS (4)
  1. ADEMPAS [Suspect]
     Active Substance: RIOCIGUAT
     Indication: PULMONARY ARTERIAL HYPERTENSION
     Dosage: UNK
     Dates: start: 20180319
  2. FUROSEMIDE. [Concomitant]
     Active Substance: FUROSEMIDE
     Dosage: 80 MG, BID
  3. TRACLEER [Concomitant]
     Active Substance: BOSENTAN
     Indication: PULMONARY HYPERTENSION
     Dosage: UNK
  4. ADEMPAS [Suspect]
     Active Substance: RIOCIGUAT
     Indication: PULMONARY ARTERIAL HYPERTENSION
     Dosage: 0.5 MG, TID
     Route: 048

REACTIONS (24)
  - Abdominal distension [Unknown]
  - Confusional state [Unknown]
  - Drug dose omission [None]
  - Joint swelling [Unknown]
  - Dizziness [Unknown]
  - Feeling abnormal [Unknown]
  - Tinnitus [Unknown]
  - Hypotension [Unknown]
  - Malaise [Unknown]
  - Blood pressure diastolic decreased [Recovered/Resolved]
  - Blood creatinine increased [Unknown]
  - Dyspnoea [Recovering/Resolving]
  - Mental impairment [Unknown]
  - Dizziness [Not Recovered/Not Resolved]
  - Dizziness [Unknown]
  - Dizziness [Recovering/Resolving]
  - Liver function test increased [Unknown]
  - Nausea [Unknown]
  - Weight increased [Recovering/Resolving]
  - Decreased appetite [Unknown]
  - Nightmare [Unknown]
  - Malaise [None]
  - Central venous catheterisation [Not Recovered/Not Resolved]
  - Blood pressure decreased [Not Recovered/Not Resolved]

NARRATIVE: CASE EVENT DATE: 20180319
